FAERS Safety Report 25636208 (Version 2)
Quarter: 2025Q3

REPORT INFORMATION
  Report Type: Spontaneous
  Country: US (occurrence: US)
  Receive Date: 20250803
  Receipt Date: 20250814
  Transmission Date: 20251021
  Serious: Yes (Other)
  Sender: DR REDDYS
  Company Number: None

PATIENT
  Age: 22 Year
  Sex: Male
  Weight: 86.18 kg

DRUGS (1)
  1. ACCUTANE [Suspect]
     Active Substance: ISOTRETINOIN
     Indication: Acne

REACTIONS (6)
  - Erectile dysfunction [Recovering/Resolving]
  - Neuroma [Unknown]
  - Neuropathy peripheral [Recovering/Resolving]
  - Head discomfort [Recovering/Resolving]
  - Anhedonia [Unknown]
  - Brain fog [Unknown]
